FAERS Safety Report 14741272 (Version 1)
Quarter: 2018Q2

REPORT INFORMATION
  Report Type: Spontaneous
  Country: US (occurrence: US)
  Receive Date: 20180404
  Receipt Date: 20180404
  Transmission Date: 20180711
  Serious: Yes (Other)
  Sender: FDA-Public Use
  Company Number: None

PATIENT
  Age: 78 Year
  Sex: Female
  Weight: 60.78 kg

DRUGS (2)
  1. ALKA SLETZER [Concomitant]
  2. DIAZEPAM 5MG TABLETS RX# 0752046-11830-WALGREEN [Suspect]
     Active Substance: DIAZEPAM
     Indication: ANXIETY
     Dosage: ?          QUANTITY:100-10 DRAM;?
     Route: 048
     Dates: start: 20180303

REACTIONS (3)
  - Paraesthesia [None]
  - Depression [None]
  - Feeling abnormal [None]

NARRATIVE: CASE EVENT DATE: 20180303
